FAERS Safety Report 5593233-2 (Version None)
Quarter: 2008Q1

REPORT INFORMATION
  Report Type: 
  Country: None (occurrence: None)
  Receive Date: 20080116
  Receipt Date: 20080111
  Transmission Date: 20080703
  Serious: Yes (Disabling)
  Sender: FDA-Public Use
  Company Number: BR-AVENTIS-200810237GDDC

PATIENT
  Age: 53 Year
  Sex: Female
  Weight: 47.5 kg

DRUGS (6)
  1. LANTUS [Suspect]
     Route: 058
     Dates: start: 20040101
  2. OPTIPEN (INSULIN PUMP) [Suspect]
     Route: 058
     Dates: start: 20040101
  3. AAS [Concomitant]
     Dosage: DOSE QUANTITY: 1
     Route: 048
     Dates: start: 20030101
  4. NIFEDIPINE [Concomitant]
     Indication: BLOOD PRESSURE
     Route: 048
     Dates: start: 20020101
  5. ASPART [Concomitant]
     Route: 058
     Dates: start: 20040101
  6. TIMOPTIC [Concomitant]
     Indication: GLAUCOMA
     Dosage: DOSE QUANTITY: 1
     Route: 031
     Dates: start: 19980101

REACTIONS (4)
  - ASTHENIA [None]
  - BLOOD GLUCOSE FLUCTUATION [None]
  - HYPERGLYCAEMIA [None]
  - HYPOGLYCAEMIC UNCONSCIOUSNESS [None]
